FAERS Safety Report 15356457 (Version 1)
Quarter: 2018Q3

REPORT INFORMATION
  Report Type: Spontaneous
  Country: US (occurrence: US)
  Receive Date: 20180830
  Receipt Date: 20180830
  Transmission Date: 20181010
  Serious: Yes (Life-Threatening, Hospitalization, Disabling, Other)
  Sender: FDA-Public Use
  Company Number: None

PATIENT
  Age: 44 Year
  Sex: Female
  Weight: 60.75 kg

DRUGS (1)
  1. VENLAFAXINE HYDROCHLORIDE. [Suspect]
     Active Substance: VENLAFAXINE HYDROCHLORIDE
     Indication: MAJOR DEPRESSION
     Route: 048
     Dates: start: 19970720

REACTIONS (9)
  - Schizophrenia [None]
  - Panic attack [None]
  - Lacrimation increased [None]
  - Dependence [None]
  - Withdrawal syndrome [None]
  - Photophobia [None]
  - Tremor [None]
  - Drug ineffective [None]
  - Anxiety [None]

NARRATIVE: CASE EVENT DATE: 20020802
